FAERS Safety Report 13292223 (Version 1)
Quarter: 2017Q1

REPORT INFORMATION
  Report Type: Spontaneous
  Country: GR (occurrence: GR)
  Receive Date: 20170303
  Receipt Date: 20170303
  Transmission Date: 20170428
  Serious: Yes (Other)
  Sender: FDA-Public Use
  Company Number: GR-TEVA-744217ISR

PATIENT
  Age: 17 Year
  Sex: Male

DRUGS (1)
  1. VENLAFAXINE [Suspect]
     Active Substance: VENLAFAXINE HYDROCHLORIDE
     Indication: AUTISM SPECTRUM DISORDER
     Dosage: 150 MILLIGRAM DAILY;
     Route: 065

REACTIONS (3)
  - Anger [Unknown]
  - Irritability [Unknown]
  - Homicide [Unknown]
